FAERS Safety Report 23354712 (Version 3)
Quarter: 2025Q2

REPORT INFORMATION
  Report Type: Spontaneous
  Country: FR (occurrence: FR)
  Receive Date: 20240101
  Receipt Date: 20250508
  Transmission Date: 20250717
  Serious: Yes (Other)
  Sender: BAUSCH AND LOMB
  Company Number: None

PATIENT
  Age: 45 Year
  Sex: Male

DRUGS (1)
  1. DICLOFENAC SODIUM [Suspect]
     Active Substance: DICLOFENAC SODIUM
     Indication: Ankylosing spondylitis
     Route: 048
     Dates: start: 20230707

REACTIONS (2)
  - Panniculitis [Not Recovered/Not Resolved]
  - Erythema induratum [Not Recovered/Not Resolved]

NARRATIVE: CASE EVENT DATE: 20230801
